FAERS Safety Report 9391180 (Version 2)
Quarter: 2013Q3

REPORT INFORMATION
  Report Type: Report from Study
  Country: TH (occurrence: TH)
  Receive Date: 20130709
  Receipt Date: 20130930
  Transmission Date: 20140515
  Serious: Yes (Death, Hospitalization, Other)
  Sender: FDA-Public Use
  Company Number: PHHY2013TH072263

PATIENT
  Age: 81 Year
  Sex: Male

DRUGS (1)
  1. ZOMETA [Suspect]
     Indication: METASTASES TO BONE
     Dosage: 4 MG, PER TIME PER MONTH
     Route: 041

REACTIONS (6)
  - Death [Fatal]
  - Osteoporosis [Not Recovered/Not Resolved]
  - Osteonecrosis of jaw [Unknown]
  - Tooth disorder [Unknown]
  - Weight decreased [Unknown]
  - Aphagia [Unknown]
